FAERS Safety Report 24659820 (Version 1)
Quarter: 2024Q4

REPORT INFORMATION
  Report Type: Spontaneous
  Country: GB (occurrence: GB)
  Receive Date: 20241125
  Receipt Date: 20241125
  Transmission Date: 20250114
  Serious: Yes (Hospitalization)
  Sender: TEVA
  Company Number: None

PATIENT

DRUGS (2)
  1. BISOPROLOL [Suspect]
     Active Substance: BISOPROLOL
     Route: 065
  2. RAMIPRIL [Suspect]
     Active Substance: RAMIPRIL
     Route: 065

REACTIONS (1)
  - Dizziness [Recovering/Resolving]
